FAERS Safety Report 15729286 (Version 2)
Quarter: 2018Q4

REPORT INFORMATION
  Report Type: Spontaneous
  Country: CN (occurrence: CN)
  Receive Date: 20181217
  Receipt Date: 20181220
  Transmission Date: 20190205
  Serious: Yes (Hospitalization)
  Sender: FDA-Public Use
  Company Number: CN-HQ SPECIALTY-CN-2018INT000276

PATIENT
  Age: 2 Month
  Sex: Male

DRUGS (2)
  1. KETAMINE [Suspect]
     Active Substance: KETAMINE
     Indication: SEDATIVE THERAPY
     Dosage: 1 MG/KG, SINGLE
     Route: 045
     Dates: start: 2016
  2. DEXMEDETOMIDINE HYDROCHLORIDE. [Suspect]
     Active Substance: DEXMEDETOMIDINE HYDROCHLORIDE
     Indication: SEDATIVE THERAPY
     Dosage: 2 ?G/KG, SINGLE
     Route: 045
     Dates: start: 2016

REACTIONS (2)
  - Arrhythmia [Recovered/Resolved]
  - Atrial tachycardia [Recovered/Resolved]
